FAERS Safety Report 15552668 (Version 3)
Quarter: 2018Q4

REPORT INFORMATION
  Report Type: Spontaneous
  Country: JP (occurrence: JP)
  Receive Date: 20181025
  Receipt Date: 20181113
  Transmission Date: 20190205
  Serious: Yes (Other)
  Sender: FDA-Public Use
  Company Number: JP-TEVA-2018-JP-966297

PATIENT
  Age: 58 Year
  Sex: Female

DRUGS (4)
  1. CAPECITABINE. [Concomitant]
     Active Substance: CAPECITABINE
     Dosage: 2400 MILLIGRAM DAILY; ADMINISTERED 1200MG TWICE DAILY FOR 2 WEEK OF THE 4 WEEKS CYCLE (FROM CYCLE 5
     Route: 065
     Dates: start: 201205
  2. OXALIPLATIN. [Suspect]
     Active Substance: OXALIPLATIN
     Dosage: ADMINISTERED ON DAY 1 OF 4 WEEKS CYCLE (FROM CYCLE 5 ONWARDS)
     Route: 065
     Dates: start: 201205
  3. OXALIPLATIN. [Suspect]
     Active Substance: OXALIPLATIN
     Indication: COLON CANCER
     Dosage: ADMINISTERED ON DAY 1 OF THE 3 WEEKS CYCLE (FROM CYCLE 1 TO CYCLE 4). DOSE REDUCED FROM CYCLE 5 O...
     Route: 065
     Dates: start: 2011
  4. CAPECITABINE. [Concomitant]
     Active Substance: CAPECITABINE
     Indication: COLON CANCER
     Dosage: 3000 MILLIGRAM DAILY; ADMINISTERED FOR 2 WEEK OF THE 3 WEEKS CYCLE (FROM CYCLE 1 TO CYCLE 4). DOSE R
     Route: 065
     Dates: start: 2011

REACTIONS (2)
  - Peripheral nerve injury [Recovering/Resolving]
  - Condition aggravated [Recovering/Resolving]
